FAERS Safety Report 5624154-4 (Version None)
Quarter: 2008Q1

REPORT INFORMATION
  Report Type: 
  Country: None (occurrence: None)
  Receive Date: 20080213
  Receipt Date: 20080208
  Transmission Date: 20080703
  Serious: Yes (Other)
  Sender: FDA-Public Use
  Company Number: US-BAYER-200813059NA

PATIENT
  Age: 75 Year
  Sex: Female

DRUGS (5)
  1. NEXAVAR [Suspect]
     Indication: RENAL CELL CARCINOMA
     Dosage: TOTAL DAILY DOSE: 800 MG  UNIT DOSE: 200 MG
     Route: 048
     Dates: start: 20080108
  2. GLIPIZIDE [Concomitant]
     Indication: DIABETES MELLITUS
     Dosage: TOTAL DAILY DOSE: 20 MG
  3. LIPITOR [Concomitant]
     Indication: BLOOD CHOLESTEROL INCREASED
  4. LASIX [Concomitant]
  5. POTASSIUM SUPPLEMENT [Concomitant]

REACTIONS (2)
  - ALOPECIA [None]
  - BLOOD GLUCOSE INCREASED [None]
